FAERS Safety Report 6736274-1 (Version None)
Quarter: 2010Q2

REPORT INFORMATION
  Report Type: 
  Country: None (occurrence: None)
  Receive Date: 20100521
  Receipt Date: 20100512
  Transmission Date: 20101027
  Serious: Yes (Hospitalization)
  Sender: FDA-Public Use
  Company Number: US-SANOFI-AVENTIS-2010SA028669

PATIENT
  Age: 76 Year
  Sex: Male
  Weight: 83.9 kg

DRUGS (11)
  1. PLAVIX [Suspect]
     Route: 048
     Dates: start: 20050101, end: 20090101
  2. PLAVIX [Suspect]
     Indication: CARDIAC OPERATION
     Route: 048
     Dates: start: 20050101, end: 20090101
  3. PLAVIX [Suspect]
     Route: 048
     Dates: start: 20090101
  4. PLAVIX [Suspect]
     Route: 048
     Dates: start: 20090101
  5. OMEPRAZOLE [Concomitant]
     Route: 048
     Dates: start: 20050101
  6. METFORMIN HCL [Concomitant]
     Route: 048
     Dates: start: 20050101
  7. METOPROLOL TARTRATE [Concomitant]
     Route: 048
     Dates: start: 20050101
  8. PRAVASTATIN [Concomitant]
     Route: 048
     Dates: start: 20050101
  9. ASPIRIN [Concomitant]
     Route: 048
     Dates: start: 20050101
  10. CENTRUM SILVER [Concomitant]
  11. CALCIUM [Concomitant]

REACTIONS (1)
  - BILE DUCT STONE [None]
